FAERS Safety Report 8881896 (Version 1)
Quarter: 2012Q4

REPORT INFORMATION
  Report Type: 
  Country: US (occurrence: US)
  Receive Date: 20121102
  Receipt Date: 20121102
  Transmission Date: 20130627
  Serious: Yes (Hospitalization, Other)
  Sender: FDA-Public Use
  Company Number: CHPA2012US022559

PATIENT
  Age: 45 Year
  Sex: Female

DRUGS (1)
  1. CONTROL STEP 3 7 MG [Suspect]
     Indication: SMOKING CESSATION THERAPY
     Dosage: 7 mg per day
     Route: 062
     Dates: start: 2005

REACTIONS (3)
  - Lung disorder [Not Recovered/Not Resolved]
  - Emphysema [Not Recovered/Not Resolved]
  - Asthma [Not Recovered/Not Resolved]
